FAERS Safety Report 5940372-X (Version None)
Quarter: 2008Q4

REPORT INFORMATION
  Report Type: 
  Country: None (occurrence: None)
  Receive Date: 20081030
  Receipt Date: 20081023
  Transmission Date: 20090506
  Serious: Yes (Hospitalization)
  Sender: FDA-Public Use
  Company Number: CAR_00215_2008

PATIENT
  Age: 84 Year
  Sex: Female

DRUGS (1)
  1. DICLOFENAC SODIUM [Suspect]
     Indication: CHEST INJURY
     Dosage: DF

REACTIONS (8)
  - AGRANULOCYTOSIS [None]
  - BLOOD PRESSURE DECREASED [None]
  - LEUKOCYTOCLASTIC VASCULITIS [None]
  - MORGANELLA INFECTION [None]
  - PYREXIA [None]
  - SCAR [None]
  - SYSTEMIC INFLAMMATORY RESPONSE SYNDROME [None]
  - VASCULITIS NECROTISING [None]
